FAERS Safety Report 20190523 (Version 2)
Quarter: 2021Q4

REPORT INFORMATION
  Report Type: Report from Study
  Country: MX (occurrence: MX)
  Receive Date: 20211215
  Receipt Date: 20211231
  Transmission Date: 20220303
  Serious: Yes (Hospitalization, Disabling, Other)
  Sender: FDA-Public Use
  Company Number: MX-002147023-NVSC2020MX281802

PATIENT
  Age: 44 Year
  Sex: Female
  Weight: 57 kg

DRUGS (6)
  1. ERENUMAB [Suspect]
     Active Substance: ERENUMAB
     Indication: Migraine
     Dosage: 140 MILLIGRAM, QMO
     Route: 058
     Dates: start: 201907, end: 202011
  2. ERENUMAB [Suspect]
     Active Substance: ERENUMAB
     Dosage: 70 MILLIGRAM, QMO
     Route: 058
     Dates: start: 202011, end: 20201231
  3. ERENUMAB [Suspect]
     Active Substance: ERENUMAB
     Dosage: UNK
     Route: 065
     Dates: start: 202101
  4. ERENUMAB [Suspect]
     Active Substance: ERENUMAB
     Dosage: 70 MILLIGRAM, QMO
     Route: 058
     Dates: start: 20210201
  5. ERENUMAB [Suspect]
     Active Substance: ERENUMAB
     Dosage: 70 MILLIGRAM, QMO
     Route: 058
  6. ERENUMAB [Suspect]
     Active Substance: ERENUMAB
     Dosage: 70 MILLIGRAM, QMO
     Route: 058
     Dates: start: 20200724

REACTIONS (24)
  - Migraine [Recovered/Resolved]
  - Migraine [Recovered/Resolved]
  - Migraine [Recovered/Resolved]
  - Movement disorder [Unknown]
  - Lower limb fracture [Not Recovered/Not Resolved]
  - Accident [Unknown]
  - Migraine [Recovered/Resolved]
  - Vomiting [Recovered/Resolved]
  - Vertigo [Recovering/Resolving]
  - Malaise [Unknown]
  - Feeling abnormal [Recovering/Resolving]
  - Fear [Unknown]
  - Memory impairment [Unknown]
  - Pain [Unknown]
  - Headache [Unknown]
  - Asthenia [Unknown]
  - Presbyopia [Not Recovered/Not Resolved]
  - COVID-19 [Recovered/Resolved]
  - Visual impairment [Recovered/Resolved]
  - Ageusia [Recovered/Resolved]
  - Anosmia [Recovered/Resolved]
  - Fatigue [Recovered/Resolved]
  - Inappropriate schedule of product administration [Unknown]
  - Drug ineffective [Unknown]

NARRATIVE: CASE EVENT DATE: 20190101
